FAERS Safety Report 20167944 (Version 1)
Quarter: 2021Q4

REPORT INFORMATION
  Report Type: Spontaneous
  Country: BR (occurrence: BR)
  Receive Date: 20211210
  Receipt Date: 20211210
  Transmission Date: 20220303
  Serious: Yes (Other)
  Sender: FDA-Public Use
  Company Number: BR-GALDERMA-BR2021019480

PATIENT

DRUGS (1)
  1. SOOLANTRA [Suspect]
     Active Substance: IVERMECTIN
     Indication: Rosacea
     Dosage: 1 DOSAGE FORM, QD, AT NIGHT, DOSAGE OF 05 POINTS
     Route: 061
     Dates: start: 20211127, end: 20211202

REACTIONS (2)
  - Rosacea [Not Recovered/Not Resolved]
  - Rash papular [Not Recovered/Not Resolved]

NARRATIVE: CASE EVENT DATE: 20211128
